FAERS Safety Report 21754791 (Version 4)
Quarter: 2023Q4

REPORT INFORMATION
  Report Type: Spontaneous
  Country: US (occurrence: US)
  Receive Date: 20221220
  Receipt Date: 20231020
  Transmission Date: 20240109
  Serious: No
  Sender: FDA-Public Use
  Company Number: US-PFIZER INC-PV202200124900

PATIENT
  Age: 61 Year
  Sex: Male

DRUGS (1)
  1. XELJANZ XR [Suspect]
     Active Substance: TOFACITINIB CITRATE
     Dosage: 11 MG

REACTIONS (6)
  - Illness [Unknown]
  - Anxiety [Unknown]
  - Arthritis [Unknown]
  - Sensitivity to weather change [Unknown]
  - COVID-19 [Unknown]
  - Feeling abnormal [Not Recovered/Not Resolved]
